FAERS Safety Report 8021321-X (Version None)
Quarter: 2011Q4

REPORT INFORMATION
  Report Type: 
  Country: None (occurrence: None)
  Receive Date: 20111229
  Receipt Date: 20111219
  Transmission Date: 20120403
  Serious: Yes (Life-Threatening, Hospitalization, Other)
  Sender: FDA-Public Use
  Company Number: AUR-APL-2011-04611

PATIENT
  Age: 82 Year
  Sex: Female

DRUGS (6)
  1. ASPIRIN [Concomitant]
  2. BLINDED THERAPY [Suspect]
     Indication: TYPE 2 DIABETES MELLITUS
     Dates: start: 20100824
  3. LISINOPRIL AND HYDROCHLOROTHIAZIDE [Suspect]
     Indication: PRODUCT USED FOR UNKNOWN INDICATION
  4. CELEBREX [Suspect]
     Indication: PRODUCT USED FOR UNKNOWN INDICATION
  5. METFORMIN HCL [Suspect]
     Indication: TYPE 2 DIABETES MELLITUS
     Dosage: (2000 MG)
  6. LANTUS [Suspect]
     Indication: TYPE 2 DIABETES MELLITUS
     Dosage: (30 IU)

REACTIONS (9)
  - DIABETES MELLITUS INADEQUATE CONTROL [None]
  - RENAL FAILURE ACUTE [None]
  - BRAIN NATRIURETIC PEPTIDE INCREASED [None]
  - SYNCOPE [None]
  - DEHYDRATION [None]
  - ESCHERICHIA TEST POSITIVE [None]
  - PULMONARY CONGESTION [None]
  - UROSEPSIS [None]
  - FLUID OVERLOAD [None]
